FAERS Safety Report 11243174 (Version 1)
Quarter: 2015Q3

REPORT INFORMATION
  Report Type: Report from Study
  Country: US (occurrence: US)
  Receive Date: 20150707
  Receipt Date: 20150707
  Transmission Date: 20151125
  Serious: Yes (Hospitalization)
  Sender: FDA-Public Use
  Company Number: US-BIOGENIDEC-2015BI060712

PATIENT
  Age: 34 Year
  Sex: Female
  Weight: 75 kg

DRUGS (3)
  1. COPAXONE [Concomitant]
     Active Substance: GLATIRAMER ACETATE
     Route: 058
     Dates: end: 20150402
  2. ZOLOFT [Concomitant]
     Active Substance: SERTRALINE HYDROCHLORIDE
  3. TECFIDERA [Suspect]
     Active Substance: DIMETHYL FUMARATE
     Indication: MULTIPLE SCLEROSIS
     Route: 048
     Dates: start: 201311, end: 201505

REACTIONS (12)
  - Dysarthria [Recovered/Resolved]
  - Pain in extremity [Not Recovered/Not Resolved]
  - Coordination abnormal [Not Recovered/Not Resolved]
  - Fall [Recovered/Resolved]
  - Tremor [Not Recovered/Not Resolved]
  - Drug ineffective [Recovered/Resolved]
  - Muscular weakness [Recovered/Resolved]
  - Multiple sclerosis relapse [Unknown]
  - White matter lesion [Unknown]
  - Demyelination [Unknown]
  - Pain [Recovered/Resolved]
  - Asthenia [Unknown]

NARRATIVE: CASE EVENT DATE: 20150219
